FAERS Safety Report 9302333 (Version 2)
Quarter: 2013Q2

REPORT INFORMATION
  Report Type: Spontaneous
  Country: US (occurrence: US)
  Receive Date: 20130522
  Receipt Date: 20130624
  Transmission Date: 20140414
  Serious: No
  Sender: FDA-Public Use
  Company Number: US-009507513-1305USA009805

PATIENT
  Age: 79 Year
  Sex: Female

DRUGS (3)
  1. JANUMET XR [Suspect]
     Indication: TYPE 2 DIABETES MELLITUS
     Dosage: 50MG/1000MG ONCE IN MORNING + ONCE IN THE EVENING
     Route: 048
     Dates: start: 20130507
  2. FUROSEMIDE [Concomitant]
  3. INSULIN [Concomitant]

REACTIONS (2)
  - Discomfort [Not Recovered/Not Resolved]
  - Abdominal pain upper [Not Recovered/Not Resolved]
